FAERS Safety Report 9663480 (Version 3)
Quarter: 2013Q4

REPORT INFORMATION
  Report Type: Spontaneous
  Country: US (occurrence: US)
  Receive Date: 20131101
  Receipt Date: 20131204
  Transmission Date: 20140711
  Serious: Yes (Other)
  Sender: FDA-Public Use
  Company Number: US-JNJFOC-20131015632

PATIENT
  Age: 16 Year
  Sex: Female
  Weight: 52.44 kg

DRUGS (9)
  1. REMICADE [Suspect]
     Indication: CROHN^S DISEASE
     Route: 042
     Dates: start: 20131031
  2. REMICADE [Suspect]
     Indication: CROHN^S DISEASE
     Dosage: ONCE EVERY 6-8 WEEKS
     Route: 042
     Dates: start: 200706
  3. SOLU-MEDROL [Concomitant]
     Indication: PROPHYLAXIS
     Route: 065
  4. SOLU-MEDROL [Concomitant]
     Indication: PREMEDICATION
     Route: 065
  5. PENTASA [Concomitant]
     Indication: CROHN^S DISEASE
     Route: 065
     Dates: start: 2007
  6. FOLIC ACID [Concomitant]
     Indication: CROHN^S DISEASE
     Route: 065
  7. VITAMIN D [Concomitant]
     Indication: VITAMIN D DEFICIENCY
     Route: 065
  8. PROTOPIC [Concomitant]
     Indication: ANORECTAL DISORDER
     Route: 065
  9. MTX [Concomitant]
     Indication: CROHN^S DISEASE
     Route: 065

REACTIONS (4)
  - Psoriasis [Unknown]
  - Acne [Unknown]
  - Folliculitis [Recovering/Resolving]
  - Alopecia [Recovering/Resolving]
